FAERS Safety Report 11708277 (Version 6)
Quarter: 2016Q1

REPORT INFORMATION
  Report Type: Spontaneous
  Country: JP (occurrence: JP)
  Receive Date: 20151107
  Receipt Date: 20160105
  Transmission Date: 20160525
  Serious: Yes (Death, Other)
  Sender: FDA-Public Use
  Company Number: PHJP2015JP005900

PATIENT
  Age: 69 Year
  Sex: Female
  Weight: 47 kg

DRUGS (5)
  1. NEORAL [Suspect]
     Active Substance: CYCLOSPORINE
     Indication: DERMATOMYOSITIS
     Dosage: 100 MG, QD
     Route: 048
     Dates: start: 20150403, end: 20150413
  2. PREDNISOLONE. [Suspect]
     Active Substance: PREDNISOLONE
     Indication: DERMATOMYOSITIS
     Dosage: 40 MG, QD
     Route: 065
     Dates: start: 20150402
  3. NEXIUM 1-2-3 [Concomitant]
     Active Substance: AMOXICILLIN\CLARITHROMYCIN\ESOMEPRAZOLE
     Indication: GASTROOESOPHAGEAL REFLUX DISEASE
     Dosage: 20 MG, QD
     Route: 048
     Dates: start: 20150402, end: 20150411
  4. REBAMIPIDE [Concomitant]
     Active Substance: REBAMIPIDE
     Indication: CHRONIC GASTRITIS
     Dosage: 100 MG, TID
     Route: 048
     Dates: start: 20150412, end: 20150502
  5. MYSLEE [Concomitant]
     Active Substance: ZOLPIDEM TARTRATE
     Indication: INSOMNIA
     Dosage: 5 MG, QD
     Route: 048
     Dates: start: 20150404, end: 20150416

REACTIONS (4)
  - Product use issue [Unknown]
  - Interstitial lung disease [Fatal]
  - Respiratory failure [Fatal]
  - Liver disorder [Not Recovered/Not Resolved]

NARRATIVE: CASE EVENT DATE: 20150413
